FAERS Safety Report 5484854-6 (Version None)
Quarter: 2007Q4

REPORT INFORMATION
  Report Type: 
  Country: None (occurrence: None)
  Receive Date: 20071010
  Receipt Date: 20061205
  Transmission Date: 20080405
  Serious: Yes (Other)
  Sender: FDA-Public Use
  Company Number: 2007MP000506

PATIENT
  Age: 58 Year
  Sex: Male

DRUGS (1)
  1. GLIADEL [Suspect]
     Indication: GLIOBLASTOMA MULTIFORME
     Dosage: ;X1;ICER

REACTIONS (3)
  - INTRACRANIAL PRESSURE INCREASED [None]
  - PNEUMOCEPHALUS [None]
  - TUMOUR NECROSIS [None]
